FAERS Safety Report 20621990 (Version 1)
Quarter: 2022Q1

REPORT INFORMATION
  Report Type: Spontaneous
  Country: GB (occurrence: GB)
  Receive Date: 20220322
  Receipt Date: 20220322
  Transmission Date: 20220423
  Serious: Yes (Other)
  Sender: FDA-Public Use
  Company Number: GB-MHRA-MED-202203042321446330-LV9IX

PATIENT
  Age: 41 Year
  Sex: Female

DRUGS (5)
  1. HYDROCORTISONE SODIUM SUCCINATE [Suspect]
     Active Substance: HYDROCORTISONE SODIUM SUCCINATE
     Indication: Dermatitis atopic
     Dosage: APPLY
     Route: 061
     Dates: start: 1979, end: 201911
  2. CLOBETASOL [Suspect]
     Active Substance: CLOBETASOL
     Indication: Dermatitis atopic
     Dosage: APPLY
     Route: 061
     Dates: start: 1979, end: 201911
  3. BETNOVATE [Suspect]
     Active Substance: BETAMETHASONE
     Indication: Dermatitis atopic
     Dosage: APPLY
     Route: 061
     Dates: start: 1979, end: 201911
  4. BETAMETHASONE VALERATE\FUSIDIC ACID [Suspect]
     Active Substance: BETAMETHASONE VALERATE\FUSIDIC ACID
     Indication: Dermatitis atopic
     Dosage: APPLY
     Route: 061
     Dates: start: 1979, end: 201911
  5. KELHALE [Concomitant]
     Indication: Asthma
     Dates: start: 1978, end: 202103

REACTIONS (13)
  - Medication error [Unknown]
  - Eczema [Not Recovered/Not Resolved]
  - Steroid withdrawal syndrome [Unknown]
  - Skin warm [Unknown]
  - Photosensitivity reaction [Unknown]
  - Rash [Unknown]
  - Skin exfoliation [Unknown]
  - Blister [Unknown]
  - Pruritus [Unknown]
  - Skin hypertrophy [Unknown]
  - Skin wrinkling [Unknown]
  - Skin disorder [Unknown]
  - Off label use [Unknown]

NARRATIVE: CASE EVENT DATE: 20190207
